FAERS Safety Report 7779659-7 (Version None)
Quarter: 2011Q3

REPORT INFORMATION
  Report Type: 
  Country: None (occurrence: None)
  Receive Date: 20110927
  Receipt Date: 20090515
  Transmission Date: 20111222
  Serious: Yes (Other)
  Sender: FDA-Public Use
  Company Number: US-BAYER-200919608NA

PATIENT
  Age: 59 Year
  Sex: Female
  Weight: 105.91 kg

DRUGS (49)
  1. SYNTHROID [Concomitant]
  2. TYLENOL W/ CODEINE NO. 3 [Concomitant]
  3. LEXAPRO [Concomitant]
  4. PHOSLO [Concomitant]
     Dates: start: 20050331
  5. CLONIDINE [Concomitant]
  6. PROZAC [Concomitant]
  7. ENALAPRIL MALEATE [Concomitant]
  8. PHENERGAN HCL [Concomitant]
  9. OMNISCAN [Suspect]
     Indication: NUCLEAR MAGNETIC RESONANCE IMAGING
     Dosage: UNK UNK, ONCE
     Dates: start: 20050503, end: 20050503
  10. MULTIHANCE [Suspect]
  11. MAGNESIUM HYDROXIDE TAB [Concomitant]
  12. CELEXA [Concomitant]
  13. SSKI [Concomitant]
  14. NORTRIPTYLINE HYDROCHLORIDE [Concomitant]
  15. OMNISCAN [Suspect]
     Dosage: UNK, ONCE
     Dates: start: 20050506, end: 20050506
  16. TOPROL-XL [Concomitant]
  17. PREVACID [Concomitant]
  18. WELLBUTRIN XL [Concomitant]
  19. MAGNEVIST [Suspect]
     Indication: COMPUTERISED TOMOGRAM HEAD
  20. EPOGEN [Concomitant]
  21. DEMADEX [Concomitant]
  22. RENAGEL [Concomitant]
     Dates: start: 20050331
  23. IMODIUM [Concomitant]
  24. TPN [Concomitant]
     Dosage: WITH DIALYSIS
     Dates: start: 20050601
  25. MAGNEVIST [Suspect]
     Indication: ANGIOGRAM
     Dosage: UNK UNK, ONCE
     Dates: start: 20040612, end: 20040612
  26. OPTIMARK [Suspect]
  27. ACETAMINOPHEN W/ CODEINE [Concomitant]
  28. HYDROXYZINE HCL [Concomitant]
  29. CALCIJEX [Concomitant]
     Dosage: WITH HD
     Route: 042
  30. ZOFRAN [Concomitant]
  31. ATARAX [Concomitant]
  32. RADIOACTIVE IODINE SOLUTION [Concomitant]
  33. PAXIL [Concomitant]
  34. LOVENOX [Concomitant]
  35. ROCALTROL [Concomitant]
  36. MAGNEVIST [Suspect]
     Indication: ANGIOGRAM CEREBRAL
     Dosage: UNK UNK, ONCE
     Dates: start: 20050101, end: 20050101
  37. MAGNEVIST [Suspect]
     Dosage: REFERENCED IN SUMMONS, ONCE
     Dates: start: 20041105, end: 20041105
  38. PROHANCE [Suspect]
  39. ASPIRIN [Concomitant]
  40. FERRLECIT [Concomitant]
     Dosage: WITH HD
     Route: 042
  41. CYMBALTA [Concomitant]
  42. NORVASC [Concomitant]
  43. CLARITIN [Concomitant]
  44. LEVOTHYROXINE SODIUM [Concomitant]
  45. LOVENOX [Concomitant]
     Route: 058
     Dates: start: 20050301
  46. TAPAZOLE [Concomitant]
  47. MUCOMYST [Concomitant]
  48. ESTROGENS ESTERIFIED [Concomitant]
  49. AMBIEN [Concomitant]

REACTIONS (16)
  - PAIN [None]
  - OEDEMA PERIPHERAL [None]
  - DEPRESSION [None]
  - GAIT DISTURBANCE [None]
  - SKIN FIBROSIS [None]
  - JOINT SWELLING [None]
  - GRIP STRENGTH DECREASED [None]
  - SKIN INDURATION [None]
  - PAIN IN EXTREMITY [None]
  - SKIN DISORDER [None]
  - NEPHROGENIC SYSTEMIC FIBROSIS [None]
  - HYPERKERATOSIS [None]
  - FIBROSIS [None]
  - JOINT STIFFNESS [None]
  - PRURITUS GENERALISED [None]
  - SKIN HYPERPIGMENTATION [None]
